FAERS Safety Report 4958892-3 (Version None)
Quarter: 2006Q1

REPORT INFORMATION
  Report Type: 
  Country: None (occurrence: None)
  Receive Date: 20060324
  Receipt Date: 20060227
  Transmission Date: 20060701
  Serious: Yes (Hospitalization, Disabling)
  Sender: FDA-Public Use
  Company Number: 384554

PATIENT
  Age: 20 Year
  Sex: Female
  Weight: 65.8 kg

DRUGS (3)
  1. ACCUTANE [Suspect]
     Indication: ACNE
     Dosage: ORAL
     Route: 048
     Dates: start: 19991206, end: 20000515
  2. MINOCYCLINE HCL [Concomitant]
  3. ORTHO CYCLEN-21 [Concomitant]

REACTIONS (78)
  - ANAEMIA [None]
  - ANXIETY [None]
  - ASTHENIA [None]
  - BACK DISORDER [None]
  - BLOOD URINE PRESENT [None]
  - BREAST ABSCESS [None]
  - BREAST FIBROSIS [None]
  - BRONCHITIS [None]
  - BURNING SENSATION [None]
  - CATHETER RELATED COMPLICATION [None]
  - COLITIS ULCERATIVE [None]
  - CONTUSION [None]
  - CROHN'S DISEASE [None]
  - CULTURE URINE POSITIVE [None]
  - CULTURE WOUND POSITIVE [None]
  - DEHYDRATION [None]
  - DEPRESSION [None]
  - DERMAL CYST [None]
  - DIARRHOEA [None]
  - DIZZINESS POSTURAL [None]
  - DRUG INEFFECTIVE [None]
  - DRY SKIN [None]
  - DYSURIA [None]
  - ECZEMA [None]
  - EMOTIONAL DISTRESS [None]
  - ESCHERICHIA INFECTION [None]
  - EYE PAIN [None]
  - FALL [None]
  - FAMILY STRESS [None]
  - FIBROSIS [None]
  - GASTROENTERITIS VIRAL [None]
  - GASTROINTESTINAL DISORDER [None]
  - GOITRE [None]
  - HEADACHE [None]
  - HEPATIC CYST [None]
  - HIATUS HERNIA [None]
  - HYPOKALAEMIA [None]
  - ILEITIS [None]
  - IMPAIRED HEALING [None]
  - INFLAMMATION [None]
  - INFLAMMATORY BOWEL DISEASE [None]
  - INGROWING NAIL [None]
  - INJURY [None]
  - INSOMNIA [None]
  - INTESTINAL HAEMORRHAGE [None]
  - IRRITABLE BOWEL SYNDROME [None]
  - JOINT SPRAIN [None]
  - LYMPHADENOPATHY [None]
  - LYMPHOID TISSUE HYPERPLASIA [None]
  - MAJOR DEPRESSION [None]
  - MELANOCYTIC NAEVUS [None]
  - MULTI-ORGAN DISORDER [None]
  - MUSCLE STRAIN [None]
  - MUSCULOSKELETAL PAIN [None]
  - MUSCULOSKELETAL STIFFNESS [None]
  - MYOFASCIAL PAIN SYNDROME [None]
  - NITRITE URINE PRESENT [None]
  - OBESITY [None]
  - OVARIAN CYST [None]
  - PAIN IN EXTREMITY [None]
  - PHARYNGITIS [None]
  - PHARYNGOLARYNGEAL PAIN [None]
  - PHOTOPHOBIA [None]
  - POLLAKIURIA [None]
  - PROTEIN URINE PRESENT [None]
  - RECTAL HAEMORRHAGE [None]
  - REFUSAL OF TREATMENT BY PATIENT [None]
  - RIB FRACTURE [None]
  - SCOLIOSIS [None]
  - SINUSITIS [None]
  - SPINAL OSTEOARTHRITIS [None]
  - STRESS [None]
  - TENDERNESS [None]
  - THROMBOSIS IN DEVICE [None]
  - THYROID MASS [None]
  - URINARY TRACT INFECTION [None]
  - VICTIM OF SPOUSAL ABUSE [None]
  - WEIGHT INCREASED [None]
